FAERS Safety Report 6741054-7 (Version None)
Quarter: 2010Q2

REPORT INFORMATION
  Report Type: 
  Country: None (occurrence: None)
  Receive Date: 20100526
  Receipt Date: 20100513
  Transmission Date: 20101027
  Serious: Yes (Hospitalization)
  Sender: FDA-Public Use
  Company Number: US-JNJFOC-20100505821

PATIENT
  Age: 16 Month

DRUGS (3)
  1. CHILDREN'S MOTRIN [Suspect]
     Route: 048
  2. CHILDREN'S MOTRIN [Suspect]
     Indication: PYREXIA
     Dosage: ^2 YR OLD DOSE Q6-8 HRS^
     Route: 048
  3. CHILDREN'S TYLENOL [Concomitant]
     Indication: PYREXIA
     Route: 048

REACTIONS (5)
  - GASTRIC HAEMORRHAGE [None]
  - PRODUCT QUALITY ISSUE [None]
  - PYREXIA [None]
  - VOMITING [None]
  - WRONG DRUG ADMINISTERED [None]
